FAERS Safety Report 16877990 (Version 2)
Quarter: 2019Q4

REPORT INFORMATION
  Report Type: Spontaneous
  Country: US (occurrence: US)
  Receive Date: 20191002
  Receipt Date: 20191024
  Transmission Date: 20200122
  Serious: Yes (Other)
  Sender: FDA-Public Use
  Company Number: US-JNJFOC-20190932205

PATIENT
  Sex: Female

DRUGS (1)
  1. SIMPONI [Suspect]
     Active Substance: GOLIMUMAB
     Indication: CROHN^S DISEASE
     Route: 058
     Dates: start: 201812

REACTIONS (4)
  - Product label issue [Unknown]
  - Fat tissue decreased [Unknown]
  - Crohn^s disease [Unknown]
  - Colostomy [Unknown]

NARRATIVE: CASE EVENT DATE: 201908
